FAERS Safety Report 9470120 (Version 1)
Quarter: 2013Q3

REPORT INFORMATION
  Report Type: Report from Study
  Country: US (occurrence: US)
  Receive Date: 20130822
  Receipt Date: 20130822
  Transmission Date: 20140515
  Serious: Yes (Hospitalization)
  Sender: FDA-Public Use
  Company Number: US-PURDUE-USA-2013-0105623

PATIENT
  Sex: Female

DRUGS (1)
  1. OXYCONTIN (NDA 22-272) [Suspect]
     Indication: RHEUMATOID ARTHRITIS
     Dosage: 40 MG, BID
     Route: 048
     Dates: start: 201106

REACTIONS (2)
  - Pneumonia [Unknown]
  - Urinary tract infection [Unknown]
